FAERS Safety Report 23380942 (Version 1)
Quarter: 2024Q1

REPORT INFORMATION
  Report Type: Other
  Country: FR (occurrence: FR)
  Receive Date: 20240109
  Receipt Date: 20240109
  Transmission Date: 20240410
  Serious: Yes (Hospitalization)
  Sender: FDA-Public Use
  Company Number: None

PATIENT

DRUGS (5)
  1. DULOXETINE [Suspect]
     Active Substance: DULOXETINE
     Indication: Depression
     Route: 048
     Dates: start: 20231024, end: 20231214
  2. DULOXETINE [Suspect]
     Active Substance: DULOXETINE
     Dosage: 90 MILLIGRAM, QD
     Route: 048
     Dates: start: 20230626, end: 20231023
  3. QUETIAPINE [Suspect]
     Active Substance: QUETIAPINE
     Indication: Dementia
     Dosage: 100 MILLIGRAM, QD
     Route: 048
     Dates: start: 20231024, end: 20231214
  4. QUETIAPINE [Suspect]
     Active Substance: QUETIAPINE
     Dosage: 50 MILLIGRAM, QD
     Route: 048
     Dates: start: 202310, end: 20231023
  5. RISPERDAL [Suspect]
     Active Substance: RISPERIDONE
     Indication: Dementia
     Dosage: 1 MILLIGRAM, QD
     Route: 048
     Dates: start: 20231024, end: 20231214

REACTIONS (1)
  - Neutropenia [Recovered/Resolved]

NARRATIVE: CASE EVENT DATE: 20231214
